FAERS Safety Report 13047274 (Version 2)
Quarter: 2016Q4

REPORT INFORMATION
  Report Type: Spontaneous
  Country: NO (occurrence: NO)
  Receive Date: 20161220
  Receipt Date: 20161227
  Transmission Date: 20170207
  Serious: Yes (Other)
  Sender: FDA-Public Use
  Company Number: NO-UCBSA-2016047796

PATIENT
  Age: 35 Year
  Sex: Female

DRUGS (15)
  1. FENEMAL [Concomitant]
     Active Substance: PHENOBARBITAL
     Indication: EPILEPSY
     Dosage: UNK
  2. VALPROIC ACID. [Suspect]
     Active Substance: VALPROIC ACID
     Dosage: 600MG X 2
  3. FOLIC ACID. [Concomitant]
     Active Substance: FOLIC ACID
     Dosage: 800 MICROGRAMS DAILY
     Dates: end: 20070210
  4. TRILEPTAL [Suspect]
     Active Substance: OXCARBAZEPINE
     Dosage: 600 MG X 2
     Route: 064
     Dates: start: 200312
  5. ORFIRIL [Suspect]
     Active Substance: VALPROIC ACID
     Indication: EPILEPSY
     Dosage: 600 MG X2
     Route: 064
     Dates: start: 19871014
  6. FOLIC ACID. [Concomitant]
     Active Substance: FOLIC ACID
     Indication: PRODUCT USED FOR UNKNOWN INDICATION
     Dosage: FOUR TABLETS OF FOLIC ACID DAILY
  7. FOLIC ACID. [Concomitant]
     Active Substance: FOLIC ACID
     Dosage: DOSES BETWEEN 0.4 MG AND 4 MG BEFORE AND DURING PREGNANCIES
  8. LAMICTAL [Suspect]
     Active Substance: LAMOTRIGINE
     Indication: EPILEPSY
     Dosage: UNK
     Dates: start: 1995
  9. VALPROIC ACID. [Suspect]
     Active Substance: VALPROIC ACID
     Dosage: 600MG X 2
  10. IRON [Concomitant]
     Active Substance: IRON
     Indication: PRODUCT USED FOR UNKNOWN INDICATION
  11. VALPROIC ACID. [Suspect]
     Active Substance: VALPROIC ACID
     Dosage: 300 + 600 MG (DURING 3. PREGNANCY)
  12. KEPPRA [Suspect]
     Active Substance: LEVETIRACETAM
     Indication: EPILEPSY
     Dosage: 500+1000MG
     Route: 064
     Dates: start: 20031023
  13. TRILEPTAL [Suspect]
     Active Substance: OXCARBAZEPINE
     Indication: EPILEPSY
     Dosage: 600 MG X 2
     Dates: start: 19951124, end: 2003
  14. VALPROIC ACID. [Suspect]
     Active Substance: VALPROIC ACID
     Indication: EPILEPSY
     Dosage: 600MG X 2
     Dates: start: 200404
  15. VALPROIC ACID. [Suspect]
     Active Substance: VALPROIC ACID
     Dosage: 600 + 900 MG

REACTIONS (5)
  - Premature delivery [Unknown]
  - Pregnancy [Unknown]
  - Breast feeding [Unknown]
  - Epilepsy [Unknown]
  - Rash [Unknown]

NARRATIVE: CASE EVENT DATE: 2006
